FAERS Safety Report 14371888 (Version 6)
Quarter: 2019Q4

REPORT INFORMATION
  Report Type: Report from Study
  Country: FR (occurrence: FR)
  Receive Date: 20180110
  Receipt Date: 20191108
  Transmission Date: 20200122
  Serious: Yes (Other)
  Sender: FDA-Public Use
  Company Number: FR-MYLANLABS-2018M1002010

PATIENT
  Age: 64 Year
  Sex: Male
  Weight: 70 kg

DRUGS (15)
  1. BEVACIZUMAB. [Suspect]
     Active Substance: BEVACIZUMAB
     Dosage: 365 MG, UNK
     Route: 065
     Dates: start: 20150326
  2. PERINDOPRIL [Concomitant]
     Active Substance: PERINDOPRIL
     Indication: PRODUCT USED FOR UNKNOWN INDICATION
     Dosage: 50 MG, UNK
     Route: 065
  3. FLUOROURACIL. [Suspect]
     Active Substance: FLUOROURACIL
     Dosage: 732 MG, UNK
     Route: 040
     Dates: start: 20150326
  4. ELVORINE [Suspect]
     Active Substance: LEUCOVORIN CALCIUM
     Dosage: 366 MG, UNK
     Route: 065
     Dates: start: 20150326
  5. AVASTIN [Suspect]
     Active Substance: BEVACIZUMAB
     Indication: COLORECTAL CANCER METASTATIC
     Dosage: 350 MILLIGRAM
     Route: 065
     Dates: start: 20150326
  6. BISOPROLOL [Concomitant]
     Active Substance: BISOPROLOL
     Indication: PRODUCT USED FOR UNKNOWN INDICATION
     Dosage: 50 MG, UNK
     Route: 065
  7. OXALIPLATIN. [Suspect]
     Active Substance: OXALIPLATIN
     Indication: COLORECTAL CANCER METASTATIC
     Dosage: 155.55 MG, UNK
     Route: 065
     Dates: start: 20150108
  8. OXALIPLATIN. [Suspect]
     Active Substance: OXALIPLATIN
     Dosage: 155.55 MG, UNK
     Route: 065
     Dates: start: 20150326
  9. BRILIQUE [Concomitant]
     Active Substance: TICAGRELOR
     Indication: PRODUCT USED FOR UNKNOWN INDICATION
     Dosage: UNK
     Route: 065
  10. FLUOROURACIL. [Suspect]
     Active Substance: FLUOROURACIL
     Dosage: 4392 MG, UNK
     Route: 041
     Dates: start: 20150124
  11. ELVORINE [Suspect]
     Active Substance: LEUCOVORIN CALCIUM
     Indication: COLORECTAL CANCER METASTATIC
     Dosage: 366 MG, UNK
     Route: 065
     Dates: start: 20150108
  12. BEVACIZUMAB. [Suspect]
     Active Substance: BEVACIZUMAB
     Indication: COLORECTAL CANCER METASTATIC
     Dosage: 365 MG, UNK
     Route: 065
     Dates: start: 20150108
  13. FLUOROURACIL. [Suspect]
     Active Substance: FLUOROURACIL
     Indication: COLORECTAL CANCER METASTATIC
     Dosage: 732 MG, UNK
     Route: 040
     Dates: start: 20150108, end: 20150122
  14. KARDEGIC [Concomitant]
     Active Substance: ASPIRIN DL-LYSINE
     Indication: PRODUCT USED FOR UNKNOWN INDICATION
     Dosage: UNK
     Route: 065
  15. FLUOROURACIL. [Suspect]
     Active Substance: FLUOROURACIL
     Dosage: 4392 MG, UNK
     Route: 041
     Dates: start: 20150326

REACTIONS (5)
  - Leukopenia [Recovered/Resolved]
  - Anaemia [Recovered/Resolved]
  - Peripheral arterial occlusive disease [Recovered/Resolved]
  - Lymphopenia [Recovered/Resolved]
  - Neutropenia [Recovered/Resolved]

NARRATIVE: CASE EVENT DATE: 20150122
